FAERS Safety Report 24025101 (Version 5)
Quarter: 2024Q3

REPORT INFORMATION
  Report Type: Report from Study
  Country: AU (occurrence: AU)
  Receive Date: 20240628
  Receipt Date: 20240710
  Transmission Date: 20241016
  Serious: No
  Sender: ROCHE
  Company Number: AU-ROCHE-3159225

PATIENT
  Age: 63 Year
  Sex: Female
  Weight: 87.1 kg

DRUGS (16)
  1. ALECTINIB [Suspect]
     Active Substance: ALECTINIB
     Indication: Lung cancer metastatic
     Route: 048
     Dates: start: 20211026
  2. ALECTINIB [Suspect]
     Active Substance: ALECTINIB
     Route: 048
     Dates: start: 20200728
  3. OSTEOVIT-D [Concomitant]
     Indication: Vitamin D decreased
     Route: 048
     Dates: start: 202110
  4. PROMENSIL [Concomitant]
     Indication: Night sweats
     Dosage: DOSE: 285
     Route: 048
     Dates: start: 202110
  5. MAGNESIUM [Concomitant]
     Active Substance: MAGNESIUM
     Indication: Muscle spasms
     Dosage: DOSE:1 CAPSULE
     Route: 048
  6. TEMAZEPAM [Concomitant]
     Active Substance: TEMAZEPAM
     Dosage: DOSE: 1 CAPSULE
     Route: 048
  7. KEFLEX [Concomitant]
     Active Substance: CEPHALEXIN
     Indication: Upper respiratory tract infection
     Route: 048
     Dates: start: 20220905, end: 20220910
  8. KEFLEX [Concomitant]
     Active Substance: CEPHALEXIN
     Indication: Pneumonia
  9. KEFLEX [Concomitant]
     Active Substance: CEPHALEXIN
     Indication: Lower respiratory tract infection
  10. NEXIUM [Concomitant]
     Active Substance: ESOMEPRAZOLE MAGNESIUM
     Route: 048
     Dates: start: 20220203
  11. NASONEX [Concomitant]
     Active Substance: MOMETASONE FUROATE
     Indication: Rhinorrhoea
     Dosage: DOSE: 1 SPRAY
     Route: 045
     Dates: start: 202207, end: 202208
  12. LYRICA [Concomitant]
     Active Substance: PREGABALIN
     Indication: Pain
     Route: 048
     Dates: start: 20191118
  13. ACETAMINOPHEN [Concomitant]
     Active Substance: ACETAMINOPHEN
     Indication: Pain
     Route: 048
     Dates: start: 20220902, end: 20220919
  14. AMOXICILLIN\CLAVULANATE POTASSIUM [Concomitant]
     Active Substance: AMOXICILLIN\CLAVULANATE POTASSIUM
     Indication: Bacteraemia
     Route: 048
     Dates: start: 20221207, end: 20221216
  15. NALOXONE HYDROCHLORIDE\OXYCODONE HYDROCHLORIDE [Concomitant]
     Active Substance: NALOXONE HYDROCHLORIDE\OXYCODONE HYDROCHLORIDE
     Indication: Pain
     Route: 048
     Dates: start: 20191118
  16. INFLUENZA VIRUS VACCINE [Concomitant]
     Active Substance: INFLUENZA VIRUS VACCINE
     Route: 030
     Dates: start: 20230426, end: 20230426

REACTIONS (1)
  - Diarrhoea [Recovered/Resolved]

NARRATIVE: CASE EVENT DATE: 20220602
